FAERS Safety Report 8016593-1 (Version None)
Quarter: 2011Q4

REPORT INFORMATION
  Report Type: 
  Country: None (occurrence: None)
  Receive Date: 20111230
  Receipt Date: 20111226
  Transmission Date: 20120403
  Serious: Yes (Life-Threatening, Other)
  Sender: FDA-Public Use
  Company Number: JP-ASTRAZENECA-2011SE78717

PATIENT
  Age: 54 Year
  Sex: Male

DRUGS (4)
  1. XYLOCAINE [Suspect]
     Indication: GASTROSTOMY
     Dosage: DOSE UNKNOWN
     Route: 065
  2. XYLOCAINE [Suspect]
     Indication: GASTROSTOMY
     Dosage: DOSE UNKNOWN
     Route: 065
  3. PENTAZOCINE LACTATE [Concomitant]
     Dosage: NUMBER OF SEPARATE DOSAGES UNKNOWN
     Route: 042
  4. DIAZEPAM [Concomitant]
     Dosage: NUMBER OF SEPARATE DOSAGES UNKNOWN
     Route: 065

REACTIONS (1)
  - ANAPHYLACTIC SHOCK [None]
